FAERS Safety Report 11188724 (Version 1)
Quarter: 2015Q2

REPORT INFORMATION
  Report Type: Spontaneous
  Country: IT (occurrence: IT)
  Receive Date: 20150615
  Receipt Date: 20150615
  Transmission Date: 20150821
  Serious: Yes (Other)
  Sender: FDA-Public Use
  Company Number: IT-TEVA-566957ACC

PATIENT
  Age: 28 Year
  Sex: Female

DRUGS (1)
  1. LORAZEPAM. [Suspect]
     Active Substance: LORAZEPAM
     Indication: DRUG ABUSE
     Dosage: 25 MG TOTAL (10 DOSAGE FORMS)
     Route: 048
     Dates: start: 20150416, end: 20150416

REACTIONS (4)
  - Toxicity to various agents [Recovering/Resolving]
  - Suicide attempt [Unknown]
  - Drug abuse [Unknown]
  - Sopor [Recovering/Resolving]

NARRATIVE: CASE EVENT DATE: 20150416
